FAERS Safety Report 12837433 (Version 2)
Quarter: 2016Q4

REPORT INFORMATION
  Report Type: Report from Study
  Country: JP (occurrence: JP)
  Receive Date: 20161011
  Receipt Date: 20161117
  Transmission Date: 20170207
  Serious: Yes (Hospitalization, Disabling)
  Sender: FDA-Public Use
  Company Number: JP-B.I. PHARMACEUTICALS,INC./RIDGEFIELD-2016-BI-45391BI

PATIENT
  Age: 69 Year
  Sex: Female
  Weight: 56 kg

DRUGS (4)
  1. WARFARIN [Suspect]
     Active Substance: WARFARIN
     Indication: ATRIAL FIBRILLATION
     Dosage: 2MG/DAY
     Route: 048
     Dates: start: 20160621, end: 20160630
  2. VERAPAMIL HCL [Concomitant]
     Active Substance: VERAPAMIL HYDROCHLORIDE
     Indication: ATRIAL FIBRILLATION
     Route: 048
     Dates: start: 201408
  3. BISOPROLOL FUMARATE TAB. 0.625MG ^TEVA^ [Concomitant]
     Indication: ATRIAL FIBRILLATION
     Route: 048
     Dates: start: 201408
  4. BONOTEO [Concomitant]
     Active Substance: MINODRONIC ACID
     Indication: OSTEOPOROSIS
     Dosage: DOSE: 50MG WEEKLY
     Route: 048
     Dates: start: 201408

REACTIONS (1)
  - Compartment syndrome [Not Recovered/Not Resolved]

NARRATIVE: CASE EVENT DATE: 20160702
